FAERS Safety Report 4367873-2 (Version None)
Quarter: 2004Q2

REPORT INFORMATION
  Report Type: 
  Country: None (occurrence: None)
  Receive Date: 20040601
  Receipt Date: 20040601
  Transmission Date: 20050107
  Serious: Yes (Other)
  Sender: FDA-Public Use
  Company Number: None

PATIENT
  Sex: Male
  Weight: 77.1115 kg

DRUGS (1)
  1. EFFEXOR [Suspect]
     Indication: DEPRESSION
     Dosage: 150 MG ONCE DAILY ORAL
     Route: 048
     Dates: start: 20040401, end: 20040815

REACTIONS (10)
  - ABDOMINAL PAIN UPPER [None]
  - CONFUSIONAL STATE [None]
  - COORDINATION ABNORMAL [None]
  - DIZZINESS [None]
  - HYPERTENSION [None]
  - NAUSEA [None]
  - PARAESTHESIA [None]
  - SUICIDAL IDEATION [None]
  - TINNITUS [None]
  - VERTIGO [None]
